FAERS Safety Report 9060260 (Version 1)
Quarter: 2013Q1

REPORT INFORMATION
  Report Type: Spontaneous
  Country: US (occurrence: None)
  Receive Date: 20130207
  Receipt Date: 20130207
  Transmission Date: 20140127
  Serious: Yes (Death)
  Sender: FDA-Public Use
  Company Number: None

PATIENT
  Sex: Male
  Weight: 102.51 kg

DRUGS (2)
  1. SIMVASTATIN [Suspect]
     Indication: HYPERTENSION
     Dosage: 40 MG DAILY ORAL
     Route: 048
     Dates: start: 20121105, end: 20121210
  2. AMLODIPINE BESYLATE [Suspect]
     Dosage: 10 MG DAILY ORAL
     Route: 048
     Dates: start: 20111013

REACTIONS (1)
  - Atrial fibrillation [None]
